FAERS Safety Report 9865146 (Version 2)
Quarter: 2014Q1

REPORT INFORMATION
  Report Type: Spontaneous
  Country: US (occurrence: US)
  Receive Date: 20140203
  Receipt Date: 20140205
  Transmission Date: 20141002
  Serious: No
  Sender: FDA-Public Use
  Company Number: US-009507513-1401USA012495

PATIENT
  Age: 19 Year
  Sex: Female
  Weight: 74.83 kg

DRUGS (2)
  1. IMPLANON [Suspect]
     Indication: CONTRACEPTION
     Dosage: UNK
     Route: 059
     Dates: start: 20080109, end: 201203
  2. IMPLANON [Suspect]
     Dosage: UNK
     Route: 059
     Dates: start: 201203

REACTIONS (2)
  - Incorrect drug administration duration [Unknown]
  - Mood swings [Unknown]
